FAERS Safety Report 5336635-1 (Version None)
Quarter: 2007Q2

REPORT INFORMATION
  Report Type: 
  Country: None (occurrence: None)
  Receive Date: 20070524
  Receipt Date: 20070515
  Transmission Date: 20071010
  Serious: Yes (Hospitalization)
  Sender: FDA-Public Use
  Company Number: 2007BI008679

PATIENT
  Age: 39 Year
  Sex: Female

DRUGS (2)
  1. AVONEX [Suspect]
     Indication: MULTIPLE SCLEROSIS
     Dosage: 30 UG; QW; IM
     Route: 030
     Dates: start: 20060720, end: 20061208
  2. AVONEX [Suspect]
     Indication: MULTIPLE SCLEROSIS
     Dosage: 30 UG; QW; IM
     Route: 030
     Dates: start: 20070330

REACTIONS (7)
  - COLLAPSE OF LUNG [None]
  - CONVULSION [None]
  - GASTROINTESTINAL INJURY [None]
  - IATROGENIC INJURY [None]
  - OVARIAN CYST [None]
  - PROCEDURAL COMPLICATION [None]
  - SEPSIS [None]
